FAERS Safety Report 4273056-7 (Version None)
Quarter: 2004Q1

REPORT INFORMATION
  Report Type: 
  Country: None (occurrence: None)
  Receive Date: 20040114
  Receipt Date: 20040105
  Transmission Date: 20041129
  Serious: Yes (Life-Threatening, Hospitalization)
  Sender: FDA-Public Use
  Company Number: HQ1935111JUN2001

PATIENT
  Age: 47 Year
  Sex: Female

DRUGS (6)
  1. SERESTA (OXAZEPAM, UNSPEC) [Suspect]
     Dosage: 10 MG 1 X PER 1 DAY
     Route: 048
     Dates: end: 20010425
  2. SABRIL (VIGABATRIN) [Concomitant]
  3. LAMICTAL [Concomitant]
  4. OMEPRAZOLE [Concomitant]
  5. HALDOL [Concomitant]
  6. PHENOBARBITAL TAB [Concomitant]

REACTIONS (5)
  - CHOLESTASIS [None]
  - HEPATIC FAILURE [None]
  - MOUTH HAEMORRHAGE [None]
  - PYREXIA [None]
  - SEDATION [None]
